FAERS Safety Report 8361660-6 (Version None)
Quarter: 2012Q2

REPORT INFORMATION
  Report Type: 
  Country: None (occurrence: None)
  Receive Date: 20120515
  Receipt Date: 20120508
  Transmission Date: 20120825
  Serious: Yes (Other)
  Sender: FDA-Public Use
  Company Number: JP-ABBOTT-12P-087-0925042-00

PATIENT
  Age: 80 Year
  Sex: Male

DRUGS (5)
  1. BERACHIN [Concomitant]
     Indication: BRONCHITIS
     Dosage: 0.5MG DAILY
     Route: 048
     Dates: start: 20120207, end: 20120308
  2. ADONA [Concomitant]
     Indication: BRONCHITIS
     Dosage: 60MG DAILY
     Route: 048
     Dates: start: 20120207, end: 20120308
  3. CLARITHROMYCIN [Suspect]
     Indication: BRONCHITIS
     Route: 048
     Dates: start: 20120207, end: 20120308
  4. MUCOSOLVAN [Concomitant]
     Indication: BRONCHITIS
     Dosage: 30MG DAILY
     Route: 048
     Dates: start: 20120207, end: 20120308
  5. SHAKUYAKUKANZOTO [Concomitant]
     Indication: MUSCLE SPASMS
     Route: 048
     Dates: start: 20120224, end: 20120308

REACTIONS (1)
  - HEPATIC FUNCTION ABNORMAL [None]
